FAERS Safety Report 9254189 (Version 1)
Quarter: 2013Q2

REPORT INFORMATION
  Report Type: Spontaneous
  Country: US (occurrence: None)
  Receive Date: 20130422
  Receipt Date: 20130422
  Transmission Date: 20140414
  Serious: Yes (Hospitalization)
  Sender: FDA-Public Use
  Company Number: None

PATIENT
  Age: 88 Year
  Sex: Male
  Weight: 59.1 kg

DRUGS (1)
  1. MOXIFLOXACIN [Suspect]
     Indication: INFECTION
     Dosage: 400 MG  EVERY DAY PO
     Route: 048
     Dates: start: 20130304, end: 20130315

REACTIONS (3)
  - Confusional state [None]
  - Transient ischaemic attack [None]
  - Cerebrovascular accident [None]
